FAERS Safety Report 12219835 (Version 3)
Quarter: 2016Q2

REPORT INFORMATION
  Report Type: Spontaneous
  Country: US (occurrence: US)
  Receive Date: 20160330
  Receipt Date: 20160428
  Transmission Date: 20160815
  Serious: Yes (Hospitalization)
  Sender: FDA-Public Use
  Company Number: US-009507513-1603USA012146

PATIENT
  Sex: Male

DRUGS (5)
  1. TOUJEO [Concomitant]
     Active Substance: INSULIN GLARGINE
  2. JANUVIA [Suspect]
     Active Substance: SITAGLIPTIN PHOSPHATE
     Dosage: UNK, UNKNOWN
     Route: 048
  3. LANTUS [Concomitant]
     Active Substance: INSULIN GLARGINE
     Dosage: UNK
  4. NOVOLOG [Suspect]
     Active Substance: INSULIN ASPART
  5. LANTUS [Concomitant]
     Active Substance: INSULIN GLARGINE
     Dosage: 50 UNIT, TWICE A DAY

REACTIONS (6)
  - Blood glucose increased [Unknown]
  - Blood glucose decreased [Unknown]
  - Infection [Unknown]
  - Cellulitis [Recovered/Resolved]
  - Weight decreased [Unknown]
  - Blood glucose decreased [Unknown]

NARRATIVE: CASE EVENT DATE: 2015
